FAERS Safety Report 10454999 (Version 2)
Quarter: 2014Q3

REPORT INFORMATION
  Report Type: Spontaneous
  Country: DE (occurrence: DE)
  Receive Date: 20140915
  Receipt Date: 20140923
  Transmission Date: 20150326
  Serious: Yes (Other)
  Sender: FDA-Public Use
  Company Number: ALCN2014DE005175

PATIENT
  Sex: Female

DRUGS (2)
  1. FLUORESCITE [Suspect]
     Active Substance: D+C YELLOW NO. 8
     Indication: ANGIOGRAM CEREBRAL
     Dosage: 2 ML, ONCE/SINGLE
     Route: 042
  2. SODIUM CHLORIDE. [Concomitant]
     Active Substance: SODIUM CHLORIDE
     Route: 042

REACTIONS (7)
  - Extravasation [Unknown]
  - Yellow skin [Unknown]
  - Haematoma [Unknown]
  - Necrosis [Unknown]
  - Pain in extremity [Unknown]
  - Off label use [Unknown]
  - Peripheral swelling [Unknown]
